FAERS Safety Report 22154562 (Version 1)
Quarter: 2023Q1

REPORT INFORMATION
  Report Type: Report from Study
  Country: US (occurrence: None)
  Receive Date: 20230330
  Receipt Date: 20230330
  Transmission Date: 20230417
  Serious: Yes (Hospitalization)
  Sender: FDA-Public Use
  Company Number: US-ROCHE-3283923

PATIENT
  Sex: Female

DRUGS (2)
  1. OBINUTUZUMAB [Suspect]
     Active Substance: OBINUTUZUMAB
     Indication: Non-Hodgkin^s lymphoma
     Dosage: ON 08/FEB/2023, LAST DOSE OF STUDY DRUG OBINUTUZUMAB. ON 12/JAN/2023, LAST DOSE OF OBINUTUZUMAB (CYC
     Route: 042
  2. IBRUTINIB [Suspect]
     Active Substance: IBRUTINIB
     Indication: Non-Hodgkin^s lymphoma
     Dosage: ON 08/FEB/2023, LAST DOSE OF STUDY DRUG IBRUTINIB.
     Route: 048

REACTIONS (4)
  - Febrile neutropenia [Recovered/Resolved]
  - Urinary tract obstruction [Recovered/Resolved]
  - Flank pain [Recovered/Resolved]
  - Kidney infection [Recovered/Resolved]

NARRATIVE: CASE EVENT DATE: 20230208
